FAERS Safety Report 19738870 (Version 1)
Quarter: 2021Q3

REPORT INFORMATION
  Report Type: Spontaneous
  Country: US (occurrence: US)
  Receive Date: 20210824
  Receipt Date: 20210824
  Transmission Date: 20211014
  Serious: Yes (Hospitalization, Other)
  Sender: FDA-Public Use
  Company Number: US-009507513-2108USA005666

PATIENT
  Sex: Female

DRUGS (2)
  1. KEYTRUDA [Suspect]
     Active Substance: PEMBROLIZUMAB
     Dosage: UNK
     Dates: end: 2021
  2. LENVATINIB MESYLATE [Suspect]
     Active Substance: LENVATINIB MESYLATE
     Indication: ENDOMETRIAL CANCER
     Dosage: 10 MILLIGRAM, QD
     Dates: start: 20210630

REACTIONS (5)
  - Product dose omission issue [Unknown]
  - Dyspnoea [Unknown]
  - Blood glucose increased [Unknown]
  - Pain in extremity [Unknown]
  - Thrombosis [Unknown]

NARRATIVE: CASE EVENT DATE: 2021
